FAERS Safety Report 6073065-1 (Version None)
Quarter: 2009Q1

REPORT INFORMATION
  Report Type: 
  Country: None (occurrence: None)
  Receive Date: 20090209
  Receipt Date: 20090209
  Transmission Date: 20090719
  Serious: Yes (Death, Other)
  Sender: FDA-Public Use
  Company Number: None

PATIENT
  Age: 65 Year
  Sex: Male

DRUGS (3)
  1. NIASPAN [Suspect]
  2. LIPITOR [Concomitant]
  3. TRICOR [Concomitant]

REACTIONS (2)
  - CAFFEINE CONSUMPTION [None]
  - MYOCARDIAL INFARCTION [None]
